FAERS Safety Report 6609652-9 (Version None)
Quarter: 2010Q1

REPORT INFORMATION
  Report Type: 
  Country: None (occurrence: None)
  Receive Date: 20100224
  Receipt Date: 20100222
  Transmission Date: 20100710
  Serious: Yes (Hospitalization)
  Sender: FDA-Public Use
  Company Number: 2010000670

PATIENT
  Age: 79 Year
  Sex: Female
  Weight: 58 kg

DRUGS (6)
  1. EFFENTORA(TABLET) [Suspect]
     Indication: PAIN
     Dosage: (200 MCG,AS REQUIRED)BU
     Route: 002
     Dates: start: 20100101
  2. DIOVAN HCT [Concomitant]
  3. DURAGESIC-100 [Concomitant]
  4. MARCOUMAT (PHENPROCOUMON) [Concomitant]
  5. METOPROLOL TARTRATE [Concomitant]
  6. FLUOXETINE [Concomitant]

REACTIONS (1)
  - HYPERTENSIVE CRISIS [None]
